FAERS Safety Report 13185339 (Version 1)
Quarter: 2020Q3

REPORT INFORMATION
  Report Type: Report from Study
  Country: US (occurrence: US)
  Receive Date: 20170203
  Receipt Date: 20170203
  Transmission Date: 20201105
  Serious: Yes (Life-Threatening, Hospitalization, Disabling)
  Sender: FDA-Public Use
  Company Number: US-US WORLDMEDS, LLC-USW201602-000216

PATIENT
  Age: 75 Year
  Sex: Male
  Weight: 76.7 kg

DRUGS (46)
  1. MICONAZOLE. [Concomitant]
     Active Substance: MICONAZOLE
     Indication: RASH
     Route: 061
     Dates: start: 20160211, end: 20160221
  2. ANCEF [Concomitant]
     Active Substance: CEFAZOLIN SODIUM
     Indication: PROPHYLAXIS
     Route: 042
     Dates: start: 20160204, end: 20160205
  3. XALTAN [Concomitant]
     Indication: OPEN ANGLE GLAUCOMA
     Route: 047
     Dates: start: 20160203, end: 20160226
  4. NORTHERA [Concomitant]
     Active Substance: DROXIDOPA
     Dates: start: 20150629, end: 20150630
  5. VALIUM [Concomitant]
     Active Substance: DIAZEPAM
     Indication: ANXIETY
     Dates: start: 20140912, end: 20160203
  6. FLOMAX [Concomitant]
     Active Substance: TAMSULOSIN HYDROCHLORIDE
     Indication: BENIGN PROSTATIC HYPERPLASIA
     Dates: start: 2014
  7. TIMOPTIC [Concomitant]
     Active Substance: TIMOLOL MALEATE
     Indication: OPEN ANGLE GLAUCOMA
     Route: 047
     Dates: start: 2012
  8. COLACE [Concomitant]
     Active Substance: DOCUSATE SODIUM
     Indication: ABDOMINAL DISTENSION
     Dates: start: 20160202
  9. CELEBREX [Concomitant]
     Active Substance: CELECOXIB
     Indication: ADENOMATOUS POLYPOSIS COLI
     Dates: start: 20150921, end: 20160203
  10. MIDODRINE [Concomitant]
     Active Substance: MIDODRINE
     Dates: start: 20150526, end: 20150601
  11. NORTHERA [Concomitant]
     Active Substance: DROXIDOPA
     Dates: start: 20150623, end: 20150624
  12. LUMIGAN [Concomitant]
     Active Substance: BIMATOPROST
     Indication: OPEN ANGLE GLAUCOMA
     Route: 047
     Dates: start: 2012
  13. TRAZODONE [Concomitant]
     Active Substance: TRAZODONE HYDROCHLORIDE
     Indication: INSOMNIA
     Dates: start: 20160211, end: 20160229
  14. NORTHERA [Concomitant]
     Active Substance: DROXIDOPA
     Indication: ORTHOSTATIC HYPERTENSION
     Dates: start: 20150619, end: 20150620
  15. AVODART [Concomitant]
     Active Substance: DUTASTERIDE
     Indication: BENIGN PROSTATIC HYPERPLASIA
     Dates: start: 2013
  16. PROTONIX [Concomitant]
     Active Substance: PANTOPRAZOLE SODIUM
     Indication: GASTROOESOPHAGEAL REFLUX DISEASE
     Route: 048
     Dates: start: 20160212
  17. CARBIDOPA/LEVODOPA [Concomitant]
     Active Substance: CARBIDOPA\LEVODOPA
     Route: 048
     Dates: start: 20160224
  18. BISACODYL. [Concomitant]
     Active Substance: BISACODYL
     Dates: start: 20160205, end: 20160229
  19. MIDODRINE [Concomitant]
     Active Substance: MIDODRINE
     Indication: ORTHOSTATIC HYPERTENSION
     Dates: start: 20140607, end: 20150525
  20. MIDODRINE [Concomitant]
     Active Substance: MIDODRINE
     Dates: start: 20150612, end: 20150620
  21. NORTHERA [Concomitant]
     Active Substance: DROXIDOPA
     Dates: start: 20150701
  22. CELEBREX [Concomitant]
     Active Substance: CELECOXIB
     Dates: start: 20160208
  23. BISACODYL. [Concomitant]
     Active Substance: BISACODYL
     Indication: CONSTIPATION
     Dates: start: 20160203, end: 20160229
  24. NORTHERA [Concomitant]
     Active Substance: DROXIDOPA
     Dates: start: 20150621, end: 20150622
  25. NORTHERA [Concomitant]
     Active Substance: DROXIDOPA
     Dates: start: 20150621, end: 20150626
  26. DEPAKOTE [Concomitant]
     Active Substance: DIVALPROEX SODIUM
     Indication: MIGRAINE
     Dates: start: 20120309, end: 2016
  27. TYLENOL [Concomitant]
     Active Substance: ACETAMINOPHEN
     Indication: PAIN
     Dates: start: 20160208
  28. MAGNESIUM SULPHATE [Concomitant]
     Active Substance: MAGNESIUM SULFATE
     Indication: HEART RATE INCREASED
     Route: 042
     Dates: start: 20160210, end: 20160210
  29. METOPROLOL. [Concomitant]
     Active Substance: METOPROLOL
     Dates: start: 20160203, end: 20160303
  30. MYOBLOC [Suspect]
     Active Substance: RIMABOTULINUMTOXINB
     Indication: SALIVARY HYPERSECRETION
     Dates: start: 20150805, end: 20160331
  31. CARBIDOPA/LEVODOPA [Concomitant]
     Active Substance: CARBIDOPA\LEVODOPA
     Indication: PARKINSON^S DISEASE
     Dates: start: 20150109
  32. CARBIDOPA/LEVODOPA [Concomitant]
     Active Substance: CARBIDOPA\LEVODOPA
     Route: 048
     Dates: start: 20160203
  33. SENOKOT [Concomitant]
     Active Substance: SENNOSIDES
     Indication: CONSTIPATION
     Dates: start: 20160203, end: 20160229
  34. MIDODRINE [Concomitant]
     Active Substance: MIDODRINE
     Dates: start: 20150602, end: 20150611
  35. MIDODRINE [Concomitant]
     Active Substance: MIDODRINE
     Dates: start: 20150627, end: 20150701
  36. PRILOSEC [Concomitant]
     Active Substance: OMEPRAZOLE MAGNESIUM
     Indication: GASTROOESOPHAGEAL REFLUX DISEASE
     Dates: start: 2013, end: 20160212
  37. CARBIDOPA/LEVODOPA [Concomitant]
     Active Substance: CARBIDOPA\LEVODOPA
     Route: 048
     Dates: start: 20160203
  38. BUTALBITAL AND ACETAMINOPHEN [Concomitant]
     Active Substance: ACETAMINOPHEN\BUTALBITAL
     Indication: HEADACHE
     Dates: start: 20150917, end: 20150917
  39. DEPAKOTE [Concomitant]
     Active Substance: DIVALPROEX SODIUM
     Dates: start: 20160211
  40. CARBIDOPA/LEVODOPA [Concomitant]
     Active Substance: CARBIDOPA\LEVODOPA
     Dates: start: 20160205, end: 20160224
  41. LOPRESSOR [Concomitant]
     Active Substance: METOPROLOL TARTRATE
     Indication: HYPERTENSION
     Dates: start: 20160203, end: 20160303
  42. LOPRESSOR [Concomitant]
     Active Substance: METOPROLOL TARTRATE
     Dates: start: 20160210, end: 20160303
  43. NORTHERA [Concomitant]
     Active Substance: DROXIDOPA
     Dates: start: 20150625, end: 20150626
  44. MOTRIN [Concomitant]
     Active Substance: IBUPROFEN
     Indication: CONTUSION
     Dates: start: 20150821, end: 20150901
  45. BABY ASPIRIN [Concomitant]
     Active Substance: ASPIRIN
     Indication: CARDIAC DISORDER
     Dates: start: 2005, end: 20160203
  46. FINASTERIDE. [Concomitant]
     Active Substance: FINASTERIDE

REACTIONS (2)
  - Pulmonary embolism [Recovered/Resolved with Sequelae]
  - Parkinson^s disease [Recovered/Resolved]

NARRATIVE: CASE EVENT DATE: 20160203
